FAERS Safety Report 12447473 (Version 1)
Quarter: 2016Q2

REPORT INFORMATION
  Report Type: Spontaneous
  Country: GB (occurrence: GB)
  Receive Date: 20160608
  Receipt Date: 20160608
  Transmission Date: 20160815
  Serious: Yes (Other)
  Sender: FDA-Public Use
  Company Number: GB-TEVA-664671ACC

PATIENT
  Age: 54 Year
  Sex: Female
  Weight: 61.68 kg

DRUGS (7)
  1. METFORMIN [Concomitant]
     Active Substance: METFORMIN HYDROCHLORIDE
  2. BISOPROLOL [Concomitant]
     Active Substance: BISOPROLOL
  3. BISOPROLOL FUMARATE. [Suspect]
     Active Substance: BISOPROLOL FUMARATE
     Dates: start: 20160513
  4. ATORVASTATIN [Concomitant]
     Active Substance: ATORVASTATIN
  5. LERCANIDIPINE [Concomitant]
     Active Substance: LERCANIDIPINE
  6. GLICLAZIDE [Concomitant]
     Active Substance: GLICLAZIDE
  7. RAMIPRIL. [Concomitant]
     Active Substance: RAMIPRIL

REACTIONS (6)
  - Musculoskeletal pain [Recovered/Resolved]
  - Back pain [Unknown]
  - Fatigue [Not Recovered/Not Resolved]
  - Dizziness postural [Not Recovered/Not Resolved]
  - Rash [Not Recovered/Not Resolved]
  - Sensation of foreign body [Recovered/Resolved]

NARRATIVE: CASE EVENT DATE: 20160513
